FAERS Safety Report 8503263-6 (Version None)
Quarter: 2012Q3

REPORT INFORMATION
  Report Type: 
  Country: None (occurrence: None)
  Receive Date: 20120711
  Receipt Date: 20120706
  Transmission Date: 20120928
  Serious: No
  Sender: FDA-Public Use
  Company Number: US-PFIZER INC-2012162447

PATIENT
  Sex: Female

DRUGS (1)
  1. LYRICA [Suspect]
     Indication: FIBROMYALGIA
     Dosage: 100MG 2X

REACTIONS (6)
  - WEIGHT INCREASED [None]
  - ABDOMINAL DISTENSION [None]
  - PAIN IN EXTREMITY [None]
  - SWELLING [None]
  - DRUG INEFFECTIVE [None]
  - EUPHORIC MOOD [None]
